FAERS Safety Report 9458381 (Version 1)
Quarter: 2013Q3

REPORT INFORMATION
  Report Type: Report from Study
  Country: NL (occurrence: NL)
  Receive Date: 20130814
  Receipt Date: 20130814
  Transmission Date: 20140515
  Serious: Yes (Death)
  Sender: FDA-Public Use
  Company Number: NL-ABBOTT-12P-114-1005888-00

PATIENT
  Age: 75 Year
  Sex: Male
  Weight: 75 kg

DRUGS (1)
  1. LUCRIN DEPOT [Suspect]
     Indication: PROSTATE CANCER
     Route: 058
     Dates: start: 20110530, end: 20130404

REACTIONS (4)
  - Death [Fatal]
  - Parkinson^s disease [Unknown]
  - Injection site pain [Recovered/Resolved]
  - Injection site swelling [Unknown]
